FAERS Safety Report 9196088 (Version 1)
Quarter: 2013Q1

REPORT INFORMATION
  Report Type: Spontaneous
  Country: IL (occurrence: IL)
  Receive Date: 20130328
  Receipt Date: 20130328
  Transmission Date: 20140127
  Serious: Yes (Other)
  Sender: FDA-Public Use
  Company Number: IL-RANBAXY-2013US-66468

PATIENT
  Sex: 0

DRUGS (1)
  1. GABAPENTIN [Suspect]
     Indication: NEUROPATHY PERIPHERAL
     Dosage: 400 MG/DAY
     Route: 065

REACTIONS (4)
  - Extraocular muscle paresis [Recovered/Resolved]
  - Facial paresis [Recovered/Resolved]
  - Mastication disorder [Recovered/Resolved]
  - Fatigue [Recovered/Resolved]
